FAERS Safety Report 13184774 (Version 3)
Quarter: 2017Q1

REPORT INFORMATION
  Report Type: Report from Study
  Country: IL (occurrence: IL)
  Receive Date: 20170203
  Receipt Date: 20170303
  Transmission Date: 20170428
  Serious: Yes (Hospitalization)
  Sender: FDA-Public Use
  Company Number: PHHY2017IL016765

PATIENT
  Sex: Male

DRUGS (2)
  1. SANDOSTATIN LAR DEPOT [Suspect]
     Active Substance: OCTREOTIDE ACETATE
     Indication: ACROMEGALY
     Dosage: 30 MG, QMO
     Route: 030
     Dates: start: 20160106
  2. SANDOSTATIN LAR DEPOT [Suspect]
     Active Substance: OCTREOTIDE ACETATE
     Dosage: 20 MG, EVERY 45 DAYS
     Route: 030
     Dates: start: 20161107

REACTIONS (2)
  - Circulatory collapse [Recovering/Resolving]
  - Inappropriate schedule of drug administration [Unknown]
